FAERS Safety Report 4511555-0 (Version None)
Quarter: 2004Q4

REPORT INFORMATION
  Report Type: 
  Country: None (occurrence: None)
  Receive Date: 20041129
  Receipt Date: 20040924
  Transmission Date: 20050328
  Serious: No
  Sender: FDA-Public Use
  Company Number: US-BRISTOL-MYERS SQUIBB COMPANY-12712238

PATIENT
  Age: 66 Year
  Sex: Male

DRUGS (1)
  1. ABILIFY [Suspect]
     Dosage: INITIATED AT 10 MG/DAY, INCREASED TO 15 MG/DAY.
     Route: 048

REACTIONS (1)
  - VISUAL DISTURBANCE [None]
